FAERS Safety Report 9848969 (Version 3)
Quarter: 2014Q1

REPORT INFORMATION
  Report Type: Spontaneous
  Country: US (occurrence: None)
  Receive Date: 20140122
  Receipt Date: 20140304
  Transmission Date: 20141002
  Serious: Yes (Death, Life-Threatening, Hospitalization, Other)
  Sender: FDA-Public Use
  Company Number: 2014US002953

PATIENT
  Age: 64 Year
  Sex: Male
  Weight: 133 kg

DRUGS (7)
  1. PONATINIB (AP24534) TABLET [Suspect]
     Indication: ACUTE LYMPHOCYTIC LEUKAEMIA
     Dosage: 30 MG (CRUSHED) VIA PEG TUBE, QD?
     Route: 048
     Dates: start: 20131218, end: 20131221
  2. PONATINIB (AP24534) TABLET [Suspect]
     Indication: CHROMOSOME ANALYSIS ABNORMAL
     Dosage: 30 MG (CRUSHED) VIA PEG TUBE, QD?
     Route: 048
     Dates: start: 20131218, end: 20131221
  3. METHOTREXATE (METHOTREXATE SODIUM) [Concomitant]
  4. RITUXAN (RITUXIMAB) [Concomitant]
  5. VINCRISTINE (VINCREISTINE SULFATE) [Concomitant]
  6. ASPARAGINASE (ASPARAGINASE) [Concomitant]
  7. DEXAMETHASONE (DEXAMETHASONE SODIUM PHOSPHATE) [Concomitant]

REACTIONS (19)
  - Septic shock [None]
  - Multi-organ failure [None]
  - Toxicity to various agents [None]
  - Respiratory failure [None]
  - Clostridium difficile infection [None]
  - Guillain-Barre syndrome [None]
  - Ascites [None]
  - Deep vein thrombosis [None]
  - Generalised oedema [None]
  - Decubitus ulcer [None]
  - Pseudomonas infection [None]
  - Chest X-ray abnormal [None]
  - Ejection fraction decreased [None]
  - Abdominal pain [None]
  - Pleural effusion [None]
  - Bacterial infection [None]
  - Pseudomonal sepsis [None]
  - Lethargy [None]
  - Oedema peripheral [None]
